FAERS Safety Report 6721667-9 (Version None)
Quarter: 2010Q2

REPORT INFORMATION
  Report Type: 
  Country: None (occurrence: None)
  Receive Date: 20100510
  Receipt Date: 20100426
  Transmission Date: 20101027
  Serious: Yes (Other)
  Sender: FDA-Public Use
  Company Number: 011249

PATIENT
  Sex: Female
  Weight: 128.6 kg

DRUGS (20)
  1. CERTOLIZUMAB PEGOL [Suspect]
     Indication: RHEUMATOID ARTHRITIS
     Dosage: (200 MG 1X/2 WEEKS SUBCUTANEOUS)
     Route: 058
     Dates: start: 20090728
  2. HYDROCODONE [Concomitant]
  3. NEURONTIN [Concomitant]
  4. HYZAAR /01284801/ [Concomitant]
  5. ACIPHEX [Concomitant]
  6. ASPIRIN [Concomitant]
  7. DAILY MULTIVITAMIN [Concomitant]
  8. FISH OIL [Concomitant]
  9. CALCIUM [Concomitant]
  10. NIACIN [Concomitant]
  11. DEPO-PROVERA [Concomitant]
  12. DIAZEPAM [Concomitant]
  13. RYTHMOL [Concomitant]
  14. ACTRAPID INSULIN NOVO [Concomitant]
  15. BUMEX [Concomitant]
  16. CRESTOR [Concomitant]
  17. SPIRIVA [Concomitant]
  18. NYSTATIN [Concomitant]
  19. ALLEGRA [Concomitant]
  20. ANTIPYRINE W/BENZOCAINE /00999201/ [Concomitant]

REACTIONS (4)
  - ASTHMA [None]
  - BRONCHITIS [None]
  - CONDITION AGGRAVATED [None]
  - SINUSITIS [None]
